FAERS Safety Report 19570486 (Version 2)
Quarter: 2021Q3

REPORT INFORMATION
  Report Type: Spontaneous
  Country: US (occurrence: US)
  Receive Date: 20210716
  Receipt Date: 20210810
  Transmission Date: 20211014
  Serious: Yes (Hospitalization)
  Sender: FDA-Public Use
  Company Number: US-SAOL THERAPEUTICS-2021SAO00241

PATIENT
  Age: 34 Year
  Sex: Male
  Weight: 66.67 kg

DRUGS (4)
  1. LIORESAL [Suspect]
     Active Substance: BACLOFEN
     Dosage: 1099 ?G, \DAY
     Route: 037
  2. VALIUM [Concomitant]
     Active Substance: DIAZEPAM
  3. DANTROLENE. [Concomitant]
     Active Substance: DANTROLENE SODIUM
  4. BACLOFEN. [Concomitant]
     Active Substance: BACLOFEN
     Route: 048

REACTIONS (6)
  - Urinary tract infection [Recovering/Resolving]
  - Muscle spasticity [Recovering/Resolving]
  - Dystonia [Recovering/Resolving]
  - Insomnia [Recovering/Resolving]
  - Hyperhidrosis [Recovering/Resolving]
  - Systemic infection [Recovering/Resolving]

NARRATIVE: CASE EVENT DATE: 202106
